FAERS Safety Report 8027022-6 (Version None)
Quarter: 2012Q1

REPORT INFORMATION
  Report Type: 
  Country: None (occurrence: None)
  Receive Date: 20120106
  Receipt Date: 20120103
  Transmission Date: 20120608
  Serious: Yes (Death)
  Sender: FDA-Public Use
  Company Number: CA-PFIZER INC-2011244755

PATIENT
  Age: 79 Year
  Sex: Male
  Weight: 72.562 kg

DRUGS (7)
  1. RISPERDAL [Concomitant]
     Dosage: 0.5 MG, 2X/DAY FOR 6 MONTHS
     Route: 048
  2. CELEXA [Concomitant]
     Dosage: 40 MG, 1X/DAY
     Route: 048
  3. METOPROLOL [Concomitant]
     Dosage: UNK
  4. LYRICA [Suspect]
     Indication: NEURALGIA
     Dosage: 75 MG, EVERY NIGHT
     Route: 048
  5. TRAZODONE [Concomitant]
     Dosage: 50 MG, 2X/DAY, AM AND BEDTIME FOR 6 MONTHS
     Route: 048
  6. AVAPRO [Concomitant]
     Dosage: UNK
  7. CRESTOR [Concomitant]
     Dosage: UNK

REACTIONS (1)
  - COMPLETED SUICIDE [None]
